FAERS Safety Report 7605136-X (Version None)
Quarter: 2011Q3

REPORT INFORMATION
  Report Type: 
  Country: None (occurrence: None)
  Receive Date: 20110713
  Receipt Date: 20110204
  Transmission Date: 20111222
  Serious: No
  Sender: FDA-Public Use
  Company Number: US-BAYER-2011-039647

PATIENT
  Age: 87 Year
  Sex: Female
  Weight: 54 kg

DRUGS (8)
  1. DIOVAN [Concomitant]
  2. MECLIZINE [Concomitant]
  3. ACETYLSALICYLIC ACID SRT [Concomitant]
  4. METOPROLOL TARTRATE [Concomitant]
  5. ZOCOR [Concomitant]
  6. XANAX [Concomitant]
  7. SYNTHROID [Concomitant]
  8. ALEVE (CAPLET) [Suspect]
     Dosage: 1 A DAY

REACTIONS (1)
  - NO ADVERSE EVENT [None]
